FAERS Safety Report 7931506-6 (Version None)
Quarter: 2011Q4

REPORT INFORMATION
  Report Type: 
  Country: None (occurrence: None)
  Receive Date: 20111121
  Receipt Date: 20111121
  Transmission Date: 20120403
  Serious: Yes (Other)
  Sender: FDA-Public Use
  Company Number: None

PATIENT
  Age: 26 Year
  Sex: Male
  Weight: 103 kg

DRUGS (2)
  1. ZOSYN [Concomitant]
  2. VANCOMYCIN [Suspect]
     Indication: PNEUMONIA
     Dosage: 1500 MG
     Route: 042
     Dates: start: 20110212, end: 20110218

REACTIONS (1)
  - NEPHROPATHY TOXIC [None]
